FAERS Safety Report 13251118 (Version 1)
Quarter: 2017Q1

REPORT INFORMATION
  Report Type: Spontaneous
  Country: JP (occurrence: JP)
  Receive Date: 20170220
  Receipt Date: 20170220
  Transmission Date: 20170428
  Serious: Yes (Other)
  Sender: FDA-Public Use
  Company Number: JP-CIPLA LTD.-2017JP01929

PATIENT

DRUGS (14)
  1. BOSENTAN. [Suspect]
     Active Substance: BOSENTAN
     Dosage: 250 MG/DAY
     Route: 048
  2. PREDNISOLONE. [Suspect]
     Active Substance: PREDNISOLONE
     Dosage: 45 MG/BODY
     Route: 065
     Dates: start: 200212
  3. SILDENAFIL. [Suspect]
     Active Substance: SILDENAFIL
     Dosage: 100 MG, QD
     Route: 048
  4. BERAPROST [Suspect]
     Active Substance: BERAPROST
     Indication: PULMONARY HYPERTENSION
     Dosage: UNK
     Route: 048
  5. BOSENTAN. [Suspect]
     Active Substance: BOSENTAN
     Dosage: 125 MG/DAY
     Route: 048
  6. EPOPROSTENOL. [Suspect]
     Active Substance: EPOPROSTENOL
     Dosage: UNK (DECREASED DOSE)
     Route: 065
  7. BOSENTAN. [Suspect]
     Active Substance: BOSENTAN
     Indication: PULMONARY HYPERTENSION
     Dosage: 62.5 MG/DAY
     Route: 048
  8. WARFARIN [Suspect]
     Active Substance: WARFARIN
     Indication: ANTICOAGULANT THERAPY
     Dosage: UNK
     Route: 065
  9. PREDNISOLONE. [Suspect]
     Active Substance: PREDNISOLONE
     Indication: SJOGREN^S SYNDROME
     Dosage: 40 MG/DAY FOR 4 WEEKS
     Route: 065
  10. PREDNISOLONE. [Suspect]
     Active Substance: PREDNISOLONE
     Dosage: 15 MG/BODY
     Route: 065
  11. TADALAFIL [Suspect]
     Active Substance: TADALAFIL
     Indication: PULMONARY HYPERTENSION
     Dosage: 20 MG/DAY
     Route: 065
  12. TADALAFIL [Suspect]
     Active Substance: TADALAFIL
     Dosage: 40 MG/DAY
     Route: 065
  13. EPOPROSTENOL. [Suspect]
     Active Substance: EPOPROSTENOL
     Dosage: 8 NG/KG/MIN
     Route: 065
     Dates: start: 200212
  14. EPOPROSTENOL. [Suspect]
     Active Substance: EPOPROSTENOL
     Indication: PULMONARY HYPERTENSION
     Dosage: UNK
     Route: 042
     Dates: start: 200212

REACTIONS (6)
  - Drug ineffective [Unknown]
  - Adverse event [Unknown]
  - Device related infection [Unknown]
  - Arthralgia [Unknown]
  - Thrombocytopenia [Unknown]
  - Interstitial lung disease [Unknown]
